FAERS Safety Report 7672875-4 (Version None)
Quarter: 2011Q3

REPORT INFORMATION
  Report Type: 
  Country: None (occurrence: None)
  Receive Date: 20110809
  Receipt Date: 20110712
  Transmission Date: 20111222
  Serious: Yes (Other)
  Sender: FDA-Public Use
  Company Number: PHHY2011KR63800

PATIENT

DRUGS (1)
  1. TEGRETOL [Suspect]
     Dosage: UNK UKN, UNK
     Route: 048
     Dates: start: 20100201

REACTIONS (4)
  - PRURITUS [None]
  - ANGIOEDEMA [None]
  - PYREXIA [None]
  - RASH [None]
